FAERS Safety Report 10618865 (Version 4)
Quarter: 2015Q1

REPORT INFORMATION
  Report Type: Spontaneous
  Country: DE (occurrence: DE)
  Receive Date: 20141202
  Receipt Date: 20150331
  Transmission Date: 20150720
  Serious: Yes (Other)
  Sender: FDA-Public Use
  Company Number: DE-UCBSA-2014003534

PATIENT
  Sex: Female
  Weight: 109 kg

DRUGS (5)
  1. KEPPRA [Suspect]
     Active Substance: LEVETIRACETAM
     Indication: SEIZURE
     Dosage: 1000 MG, 2X/DAY (BID)
  2. VIMPAT [Suspect]
     Active Substance: LACOSAMIDE
     Dosage: 100 MG, ONCE DAILY (QD) (IN THE EVENING), STRENGTH: 100 MG
     Route: 048
     Dates: start: 20140617, end: 201409
  3. LEVETIRACETAM UCB [Suspect]
     Active Substance: LEVETIRACETAM
     Indication: EPILEPSY
     Dosage: 1000 MG, 2X/DAY (BID)
     Route: 048
     Dates: start: 20140601
  4. VIMPAT [Suspect]
     Active Substance: LACOSAMIDE
     Indication: EPILEPSY
     Dosage: 50 MG, ONCE DAILY (QD) (IN THE EVENING) STRENGTH: 50 MG
     Route: 048
     Dates: start: 20131001
  5. VALPROAT CHRONO [Concomitant]
     Indication: EPILEPSY
     Dosage: 500 MG, ONCE DAILY (QD)
     Route: 048
     Dates: start: 1998, end: 20150131

REACTIONS (5)
  - Fatigue [Recovered/Resolved]
  - Seizure [Recovered/Resolved]
  - Weight increased [Recovered/Resolved]
  - Headache [Recovered/Resolved]
  - Drug ineffective [Unknown]

NARRATIVE: CASE EVENT DATE: 2014
